FAERS Safety Report 21937785 (Version 1)
Quarter: 2023Q1

REPORT INFORMATION
  Report Type: Spontaneous
  Country: CN (occurrence: CN)
  Receive Date: 20230201
  Receipt Date: 20230201
  Transmission Date: 20230418
  Serious: Yes (Other)
  Sender: FDA-Public Use
  Company Number: CN-PFIZER INC-PV202300018157

PATIENT
  Age: 91 Year
  Sex: Male

DRUGS (1)
  1. NIRMATRELVIR\RITONAVIR [Suspect]
     Active Substance: NIRMATRELVIR\RITONAVIR
     Indication: COVID-19 pneumonia
     Dosage: 1 DF, 2X/DAY
     Dates: start: 20230118, end: 20230123

REACTIONS (3)
  - Drug-induced liver injury [Recovering/Resolving]
  - Wrong technique in product usage process [Unknown]
  - Off label use [Unknown]

NARRATIVE: CASE EVENT DATE: 20230118
